FAERS Safety Report 9888537 (Version 4)
Quarter: 2014Q2

REPORT INFORMATION
  Report Type: Report from Study
  Country: GB (occurrence: GB)
  Receive Date: 20140211
  Receipt Date: 20140630
  Transmission Date: 20141212
  Serious: Yes (Death, Hospitalization)
  Sender: FDA-Public Use
  Company Number: GB-B.I. PHARMACEUTICALS,INC./RIDGEFIELD-2012-EU-05518EU

PATIENT
  Age: 78 Year
  Sex: Male

DRUGS (8)
  1. BIBW 2992 [Suspect]
     Indication: SQUAMOUS CELL CARCINOMA OF LUNG
     Dosage: 40 MG
     Route: 048
     Dates: start: 20121031, end: 20121106
  2. BIBW 2992 [Suspect]
     Dosage: 20 MG
     Route: 048
     Dates: start: 20121128, end: 20121217
  3. SIMVASTATIN [Concomitant]
     Indication: BLOOD CHOLESTEROL INCREASED
     Dosage: 40 MG
     Route: 048
     Dates: start: 20121010
  4. RANITIDINE [Concomitant]
     Indication: GASTROOESOPHAGEAL REFLUX DISEASE
     Dosage: 150 MG
     Route: 048
     Dates: start: 20111212
  5. VENTOLIN [Concomitant]
     Indication: DYSPNOEA
     Dosage: DAILY DOSE: 1-2 PRN
     Route: 048
  6. QUININE SULPHATE [Concomitant]
     Indication: MUSCLE SPASMS
     Dosage: 300 MG
     Route: 048
  7. LOPERAMIDE [Concomitant]
     Indication: ANTIEMETIC SUPPORTIVE CARE
     Dosage: 2 MG
     Route: 048
     Dates: start: 20121031
  8. PARACETAMOL [Concomitant]
     Indication: PAIN
     Route: 048

REACTIONS (4)
  - Malignant neoplasm progression [Fatal]
  - Diarrhoea [Recovered/Resolved]
  - Syncope [Recovered/Resolved]
  - Pneumonia [Not Recovered/Not Resolved]
